FAERS Safety Report 9006926 (Version 1)
Quarter: 2013Q1

REPORT INFORMATION
  Report Type: Not Available
  Country: CN (occurrence: CN)
  Receive Date: 20130110
  Receipt Date: 20130110
  Transmission Date: 20140127
  Serious: Yes (Other)
  Sender: FDA-Public Use
  Company Number: CN-NAPPMUNDI-DEU-2012-0010211

PATIENT
  Age: 74 Year
  Sex: Male
  Weight: 72 kg

DRUGS (1)
  1. MS CONTIN TABLETS [Suspect]
     Indication: CANCER PAIN
     Dosage: 30 MG, BID
     Route: 048
     Dates: start: 20090107, end: 20090111

REACTIONS (3)
  - Coma [Recovering/Resolving]
  - Vomiting [Unknown]
  - Miosis [Unknown]
